FAERS Safety Report 24700148 (Version 1)
Quarter: 2024Q4

REPORT INFORMATION
  Report Type: Spontaneous
  Country: US (occurrence: US)
  Receive Date: 20241205
  Receipt Date: 20241205
  Transmission Date: 20250115
  Serious: Yes (Hospitalization)
  Sender: NOVITIUM PHARMA
  Company Number: US-NOVITIUMPHARMA-2024USNVP02760

PATIENT
  Sex: Male

DRUGS (10)
  1. PREDNISONE [Suspect]
     Active Substance: PREDNISONE
     Indication: Rosai-Dorfman syndrome
     Route: 048
  2. PREDNISONE [Suspect]
     Active Substance: PREDNISONE
     Indication: Respiratory distress
     Dosage: 30-40MG
  3. PREDNISONE [Suspect]
     Active Substance: PREDNISONE
     Indication: Hypoxia
     Dosage: REDUCTION OF PREDNISONE DOSE BELOW 30 MG
  4. PREDNISONE [Suspect]
     Active Substance: PREDNISONE
     Dosage: TAPERED
  5. RITUXIMAB [Concomitant]
     Active Substance: RITUXIMAB
  6. LENALIDOMIDE [Concomitant]
     Active Substance: LENALIDOMIDE
     Dosage: FOR 3 WEEKS
  7. DEXAMETHASONE [Concomitant]
     Active Substance: DEXAMETHASONE
  8. FILGRASTIM [Concomitant]
     Active Substance: FILGRASTIM
  9. Cotrimoxazole [trimethoprim/sulphamethoxazole] [Concomitant]
     Indication: Product used for unknown indication
  10. SIROLIMUS [Concomitant]
     Active Substance: SIROLIMUS
     Indication: Product used for unknown indication

REACTIONS (1)
  - Rebound effect [Unknown]
